FAERS Safety Report 5085042-8 (Version None)
Quarter: 2006Q3

REPORT INFORMATION
  Report Type: 
  Country: None (occurrence: None)
  Receive Date: 20060815
  Receipt Date: 20060731
  Transmission Date: 20061208
  Serious: Yes (Other)
  Sender: FDA-Public Use
  Company Number: US200608000079

PATIENT
  Age: 90 Year
  Sex: Male

DRUGS (5)
  1. HUMALOG [Suspect]
     Indication: DIABETES MELLITUS
     Dosage: SEE IMAGE
     Dates: start: 20060509
  2. HUMALOG [Suspect]
     Indication: DIABETES MELLITUS
     Dosage: SEE IMAGE
     Dates: start: 20060509
  3. HUMALOG [Suspect]
     Indication: DIABETES MELLITUS
     Dosage: SEE IMAGE
     Dates: start: 20060509
  4. HUMULIN R [Suspect]
     Indication: DIABETES MELLITUS
     Dates: end: 20060501
  5. HUMULIN N [Suspect]
     Indication: DIABETES MELLITUS
     Dosage: 20 U, EACH MORNING,
     Dates: start: 19750101

REACTIONS (3)
  - BLINDNESS [None]
  - BLOOD GLUCOSE FLUCTUATION [None]
  - DIABETES MELLITUS INSULIN-DEPENDENT [None]
